FAERS Safety Report 10181951 (Version 1)
Quarter: 2014Q2

REPORT INFORMATION
  Report Type: Spontaneous
  Country: US (occurrence: US)
  Receive Date: 20140519
  Receipt Date: 20140519
  Transmission Date: 20141212
  Serious: Yes (Hospitalization, Other)
  Sender: FDA-Public Use
  Company Number: US-GILEAD-2014-0102881

PATIENT
  Age: 61 Year
  Sex: Female

DRUGS (13)
  1. LETAIRIS [Suspect]
     Indication: COR PULMONALE CHRONIC
     Dosage: 10 MG, QD
     Route: 065
     Dates: start: 20130123
  2. REMODULIN [Concomitant]
  3. BYETTA [Concomitant]
  4. PLAQUENIL                          /00072602/ [Concomitant]
  5. SPIRONOLACTONE [Concomitant]
  6. OXYCODONE [Concomitant]
  7. HUMALOG [Concomitant]
  8. COUMADIN                           /00014802/ [Concomitant]
  9. LASIX                              /00032601/ [Concomitant]
  10. LANTUS [Concomitant]
  11. POTASSIUM [Concomitant]
  12. EFFEXOR [Concomitant]
  13. PROTONIX [Concomitant]

REACTIONS (1)
  - Dyspnoea [Not Recovered/Not Resolved]
